FAERS Safety Report 24593569 (Version 2)
Quarter: 2024Q4

REPORT INFORMATION
  Report Type: Spontaneous
  Country: US (occurrence: US)
  Receive Date: 20241108
  Receipt Date: 20241211
  Transmission Date: 20250114
  Serious: No
  Sender: CASPER PHARMA
  Company Number: US-CASPERPHARMA-US-2024RISSPO00429

PATIENT
  Sex: Male

DRUGS (1)
  1. ALLOPURINOL [Suspect]
     Active Substance: ALLOPURINOL
     Indication: Product used for unknown indication
     Route: 065

REACTIONS (1)
  - Rash [Unknown]
